FAERS Safety Report 17174060 (Version 4)
Quarter: 2022Q1

REPORT INFORMATION
  Report Type: Report from Study
  Country: US (occurrence: None)
  Receive Date: 20191218
  Receipt Date: 20220202
  Transmission Date: 20220424
  Serious: Yes (Hospitalization)
  Sender: FDA-Public Use
  Company Number: US-ROCHE-2497520

PATIENT
  Age: 81 Year
  Sex: Male
  Weight: 104.8 kg

DRUGS (19)
  1. OBINUTUZUMAB [Suspect]
     Active Substance: OBINUTUZUMAB
     Indication: Chronic lymphocytic leukaemia
     Dosage: ON 15/NOV/2019, HE RECEIVED RECENT DOSE OF OBINUTUZUMAB.?ALSO RECEIVED 900 MG AND 1000 MG ON UNSPECI
     Route: 042
     Dates: start: 20191114
  2. IBRUTINIB [Suspect]
     Active Substance: IBRUTINIB
     Indication: Chronic lymphocytic leukaemia
     Dosage: ON 21/NOV/2019, HE RECEIVED RECENT DOSE OF IBRUTINIB.
     Route: 048
     Dates: start: 20191114
  3. ELIQUIS [Concomitant]
     Active Substance: APIXABAN
  4. ALLOPURINOL [Concomitant]
     Active Substance: ALLOPURINOL
  5. RASBURICASE [Concomitant]
     Active Substance: RASBURICASE
     Route: 042
  6. PLAVIX [Concomitant]
     Active Substance: CLOPIDOGREL BISULFATE
  7. IMBRUVICA [Concomitant]
     Active Substance: IBRUTINIB
  8. ZOFRAN [Concomitant]
     Active Substance: ONDANSETRON HYDROCHLORIDE
  9. HYDROCORTISONE [Concomitant]
     Active Substance: HYDROCORTISONE
  10. ZYLOPRIM [Concomitant]
     Active Substance: ALLOPURINOL
  11. NORVASC [Concomitant]
     Active Substance: AMLODIPINE BESYLATE
  12. LASIX [Concomitant]
     Active Substance: FUROSEMIDE
  13. MICRO-K [Concomitant]
     Active Substance: POTASSIUM CHLORIDE
  14. LOSARTAN [Concomitant]
     Active Substance: LOSARTAN
  15. IMDUR [Concomitant]
     Active Substance: ISOSORBIDE MONONITRATE
  16. TOPROL XL [Concomitant]
     Active Substance: METOPROLOL SUCCINATE
  17. ANORO ELLIPTA [Concomitant]
     Active Substance: UMECLIDINIUM BROMIDE\VILANTEROL TRIFENATATE
  18. NITROSTAT [Concomitant]
     Active Substance: NITROGLYCERIN
  19. LIPITOR [Concomitant]
     Active Substance: ATORVASTATIN CALCIUM

REACTIONS (2)
  - Hypotension [Not Recovered/Not Resolved]
  - Muscular weakness [Not Recovered/Not Resolved]

NARRATIVE: CASE EVENT DATE: 20191121
